FAERS Safety Report 23530117 (Version 1)
Quarter: 2024Q1

REPORT INFORMATION
  Report Type: Spontaneous
  Country: GB (occurrence: GB)
  Receive Date: 20240216
  Receipt Date: 20240216
  Transmission Date: 20240410
  Serious: Yes (Other)
  Sender: FDA-Public Use
  Company Number: None

PATIENT
  Age: 65 Year
  Sex: Male
  Weight: 99 kg

DRUGS (5)
  1. AMLODIPINE [Suspect]
     Active Substance: AMLODIPINE BESYLATE
     Indication: Product used for unknown indication
     Dosage: EACH MORNING
     Dates: start: 20231128
  2. AZATHIOPRINE [Concomitant]
     Active Substance: AZATHIOPRINE
     Dates: start: 20230823
  3. Calcium carbonate ,Cholecalciferol [Concomitant]
     Indication: Bone disorder
     Dates: start: 20210818, end: 20231206
  4. MESALAMINE [Concomitant]
     Active Substance: MESALAMINE
     Dates: start: 20231016
  5. SALOFALK [Concomitant]
     Dosage: USE AS DIRECTED
     Dates: start: 20221018

REACTIONS (2)
  - Diarrhoea haemorrhagic [Recovered/Resolved]
  - Abdominal distension [Recovered/Resolved]
